FAERS Safety Report 21214648 (Version 1)
Quarter: 2022Q3

REPORT INFORMATION
  Report Type: Spontaneous
  Country: KR (occurrence: KR)
  Receive Date: 20220816
  Receipt Date: 20220816
  Transmission Date: 20221027
  Serious: Yes (Hospitalization, Other)
  Sender: FDA-Public Use
  Company Number: KR-SUN PHARMACEUTICAL INDUSTRIES LTD-2022R1-348441

PATIENT
  Age: 47 Year
  Sex: Female

DRUGS (1)
  1. CLOZAPINE [Suspect]
     Active Substance: CLOZAPINE
     Indication: Schizophrenia
     Dosage: 100 MILLIGRAM, UNK
     Route: 065

REACTIONS (5)
  - Empyema [Recovered/Resolved]
  - Streptococcal infection [Recovered/Resolved]
  - Therapeutic product effect incomplete [Unknown]
  - Sedation [Unknown]
  - Salivary hypersecretion [Unknown]
